FAERS Safety Report 9780887 (Version 1)
Quarter: 2013Q4

REPORT INFORMATION
  Report Type: Spontaneous
  Country: NZ (occurrence: None)
  Receive Date: 20131220
  Receipt Date: 20131220
  Transmission Date: 20140711
  Serious: Yes (Hospitalization, Other)
  Sender: FDA-Public Use
  Company Number: 2013-NZ-004509

PATIENT
  Age: 77 Year
  Sex: Male

DRUGS (2)
  1. CLOZAPINE [Suspect]
     Indication: SCHIZOPHRENIA
     Route: 048
  2. RISPERIDONE [Suspect]
     Indication: SCHIZOPHRENIA

REACTIONS (12)
  - Pneumonitis [None]
  - Right ventricular failure [None]
  - Vasculitis [None]
  - Drug level increased [None]
  - Toxicity to various agents [None]
  - Panic attack [None]
  - Tachycardia [None]
  - Pneumonia [None]
  - Atrial fibrillation [None]
  - Myocarditis [None]
  - Pleural effusion [None]
  - Alveolitis allergic [None]
